FAERS Safety Report 5465462-X (Version None)
Quarter: 2007Q3

REPORT INFORMATION
  Report Type: 
  Country: None (occurrence: None)
  Receive Date: 20070920
  Receipt Date: 20070920
  Transmission Date: 20080115
  Serious: No
  Sender: FDA-Public Use
  Company Number: None

PATIENT
  Age: 43 Year
  Sex: Female
  Weight: 90.7194 kg

DRUGS (2)
  1. CLONAZEPAM [Suspect]
     Indication: ANXIETY
     Dosage: ONE AT BEDTIME PO
     Route: 048
     Dates: start: 20070828, end: 20070918
  2. CLONAZEPAM [Suspect]
     Indication: SLEEP DISORDER
     Dosage: ONE AT BEDTIME PO
     Route: 048
     Dates: start: 20070828, end: 20070918

REACTIONS (1)
  - SOMNOLENCE [None]
